FAERS Safety Report 9652130 (Version 2)
Quarter: 2013Q4

REPORT INFORMATION
  Report Type: Spontaneous
  Country: CR (occurrence: CR)
  Receive Date: 20131029
  Receipt Date: 20131203
  Transmission Date: 20140711
  Serious: Yes (Other)
  Sender: FDA-Public Use
  Company Number: PHHY2013CR121268

PATIENT
  Age: 39 Year
  Sex: Male

DRUGS (2)
  1. NEORAL [Suspect]
     Indication: LIVER TRANSPLANT
     Dosage: 350 MG, Q12H
     Route: 048
     Dates: end: 20131009
  2. NEORAL [Suspect]
     Dosage: 150 MG, Q12H
     Route: 048

REACTIONS (3)
  - Renal disorder [Recovering/Resolving]
  - Renal failure acute [Unknown]
  - Hyperkalaemia [Unknown]
